FAERS Safety Report 10979261 (Version 1)
Quarter: 2015Q2

REPORT INFORMATION
  Report Type: Spontaneous
  Country: NL (occurrence: NL)
  Receive Date: 20150402
  Receipt Date: 20150402
  Transmission Date: 20150821
  Serious: Yes (Other)
  Sender: FDA-Public Use
  Company Number: NL-TEVA-550370ISR

PATIENT
  Age: 19 Year
  Sex: Female

DRUGS (4)
  1. AMOXICILLINE CAPSULE 500MG [Suspect]
     Active Substance: AMOXICILLIN
     Indication: SINUSITIS
     Dosage: DOSE UNKNOWN
     Route: 048
     Dates: start: 201405, end: 201405
  2. ETHINYLESTRADIOL/LEVONORGESTREL DRAGEE 30/150UG [Concomitant]
     Active Substance: ETHINYL ESTRADIOL\LEVONORGESTREL
     Route: 048
  3. AMOXICILLIN W/CLAVULANIC ACID [Suspect]
     Active Substance: AMOXICILLIN\CLAVULANIC ACID
     Route: 065
  4. TIMOTHEEGRASPOLLEN LYOPHILISAAT 75000E [Suspect]
     Active Substance: PHLEUM PRATENSE POLLEN
     Indication: PRODUCT USED FOR UNKNOWN INDICATION
     Route: 048
     Dates: start: 20120919, end: 201406

REACTIONS (4)
  - Angioedema [Unknown]
  - Rash [Recovered/Resolved]
  - Renal disorder [Unknown]
  - Rash pruritic [Recovered/Resolved]

NARRATIVE: CASE EVENT DATE: 201405
